FAERS Safety Report 9270821 (Version 1)
Quarter: 2013Q2

REPORT INFORMATION
  Report Type: Spontaneous
  Country: CN (occurrence: CN)
  Receive Date: 20130505
  Receipt Date: 20130505
  Transmission Date: 20140414
  Serious: Yes (Hospitalization)
  Sender: FDA-Public Use
  Company Number: CN-BRISTOL-MYERS SQUIBB COMPANY-18829457

PATIENT
  Sex: Female

DRUGS (1)
  1. BYETTA [Suspect]
     Route: 058
     Dates: start: 20130419, end: 20130422

REACTIONS (3)
  - Vomiting [Recovered/Resolved]
  - Decreased appetite [Unknown]
  - Mental impairment [Unknown]
